FAERS Safety Report 25877807 (Version 3)
Quarter: 2025Q4

REPORT INFORMATION
  Report Type: Report from Study
  Country: PR (occurrence: PR)
  Receive Date: 20251003
  Receipt Date: 20251030
  Transmission Date: 20260117
  Serious: Yes (Other)
  Sender: ABBVIE
  Company Number: PR-ABBVIE-6483816

PATIENT
  Age: 22 Year
  Sex: Male
  Weight: 64.863 kg

DRUGS (2)
  1. HUMIRA [Suspect]
     Active Substance: ADALIMUMAB
     Indication: Crohn^s disease
     Dosage: HUMIRA CITRATE FREE PEN
     Route: 058
     Dates: start: 20250505
  2. BUDESONIDE [Concomitant]
     Active Substance: BUDESONIDE
     Indication: Gastrointestinal inflammation

REACTIONS (4)
  - Small intestinal obstruction [Recovered/Resolved]
  - Discomfort [Recovered/Resolved]
  - Gastrointestinal inflammation [Recovered/Resolved]
  - Gastrointestinal stenosis [Not Recovered/Not Resolved]

NARRATIVE: CASE EVENT DATE: 20250101
